FAERS Safety Report 5080060-8 (Version None)
Quarter: 2006Q3

REPORT INFORMATION
  Report Type: 
  Country: None (occurrence: None)
  Receive Date: 20060720
  Receipt Date: 20060516
  Transmission Date: 20061208
  Serious: Yes (Other)
  Sender: FDA-Public Use
  Company Number: 2005154957

PATIENT
  Age: 67 Year
  Sex: Male

DRUGS (1)
  1. CELEBREX [Suspect]
     Indication: ARTHRITIS
     Dosage: 200 MG (2 IN 1 D)
     Dates: start: 20010401, end: 20050401

REACTIONS (2)
  - OESOPHAGEAL ULCER HAEMORRHAGE [None]
  - ULCER HAEMORRHAGE [None]
